FAERS Safety Report 4944622-8 (Version None)
Quarter: 2006Q1

REPORT INFORMATION
  Report Type: 
  Country: None (occurrence: None)
  Receive Date: 20060315
  Receipt Date: 20060228
  Transmission Date: 20060701
  Serious: Yes (Hospitalization)
  Sender: FDA-Public Use
  Company Number: 2006AP00998

PATIENT

DRUGS (14)
  1. SEROQUEL [Suspect]
     Dosage: 200 MG MANE + 500 MG NOCTE
     Route: 048
  2. THYROXINE [Concomitant]
     Route: 048
  3. AROPAX [Concomitant]
     Route: 048
  4. DIAFORMIN [Concomitant]
     Route: 048
  5. MOVICOL [Concomitant]
     Dosage: MOVOCOL OR LACTULOSE
  6. LACTULOSE [Concomitant]
     Dosage: 20-70 ML
     Route: 048
  7. SERETIDE [Concomitant]
     Dosage: 500/50
     Route: 055
  8. VENTOLIN [Concomitant]
  9. LIVINIL [Concomitant]
     Route: 048
  10. COLOXYL WITH SENNA [Concomitant]
     Route: 048
  11. CLONAZEPAM [Concomitant]
     Route: 048
  12. STILNOX [Concomitant]
     Dosage: 1-2
     Route: 048
  13. VENTOLIN [Concomitant]
     Route: 055
  14. ATROVENT [Concomitant]
     Dosage: ADDED TO NEBULISER

REACTIONS (2)
  - BRONCHIECTASIS [None]
  - NEUROPATHY PERIPHERAL [None]
